FAERS Safety Report 18607911 (Version 1)
Quarter: 2020Q4

REPORT INFORMATION
  Report Type: Spontaneous
  Country: US (occurrence: US)
  Receive Date: 20201211
  Receipt Date: 20201211
  Transmission Date: 20210114
  Serious: Yes (Other)
  Sender: FDA-Public Use
  Company Number: US-FRESENIUS KABI-FK202013188

PATIENT
  Age: 23 Year
  Sex: Female
  Weight: 112 kg

DRUGS (7)
  1. ALBUMIN HUMAN [Concomitant]
     Active Substance: ALBUMIN HUMAN
     Indication: FLUID REPLACEMENT
  2. HEPARIN (MANUFACTURER UNKNOWN) [Suspect]
     Active Substance: HEPARIN SODIUM
     Indication: ANTICOAGULANT THERAPY
     Route: 065
  3. BUPIVACAINE. [Concomitant]
     Active Substance: BUPIVACAINE
     Indication: EPIDURAL ANAESTHESIA
     Route: 037
  4. BUPIVACAINE. [Concomitant]
     Active Substance: BUPIVACAINE
     Dosage: CONTAINING 100MCG OF FENTANYL
     Route: 037
  5. METHYLERGOMETRINE MALEATE [Concomitant]
     Active Substance: METHYLERGONOVINE MALEATE
     Indication: PROPHYLAXIS
     Dosage: GIVEN IN 20 MCG/ML ALIQUOTS
     Route: 042
  6. WARFARIN [Suspect]
     Active Substance: WARFARIN
     Indication: ANTICOAGULANT THERAPY
     Route: 065
  7. MORPHINE [Concomitant]
     Active Substance: MORPHINE
     Indication: POSTOPERATIVE ANALGESIA
     Route: 008

REACTIONS (2)
  - Abdominal wall haematoma [Recovered/Resolved]
  - Exposure during pregnancy [Recovered/Resolved]
